FAERS Safety Report 19970231 (Version 1)
Quarter: 2021Q4

REPORT INFORMATION
  Report Type: Spontaneous
  Country: SE (occurrence: SE)
  Receive Date: 20211019
  Receipt Date: 20211019
  Transmission Date: 20220303
  Serious: Yes (Other)
  Sender: FDA-Public Use
  Company Number: SE-SUN PHARMACEUTICAL INDUSTRIES LTD-2021RR-314714

PATIENT
  Age: 59 Year
  Sex: Male

DRUGS (1)
  1. SERTRALINE [Suspect]
     Active Substance: SERTRALINE HYDROCHLORIDE
     Indication: Product used for unknown indication
     Dosage: 100 MILLIGRAM, UNK
     Route: 065
     Dates: start: 20210820

REACTIONS (6)
  - Chest pain [Unknown]
  - Dizziness [Unknown]
  - Visual impairment [Unknown]
  - Tremor [Unknown]
  - Micturition disorder [Unknown]
  - Nausea [Unknown]

NARRATIVE: CASE EVENT DATE: 20210101
